FAERS Safety Report 4352564-4 (Version None)
Quarter: 2004Q2

REPORT INFORMATION
  Report Type: 
  Country: None (occurrence: None)
  Receive Date: 20040503
  Receipt Date: 20040503
  Transmission Date: 20050107
  Serious: Yes (Death)
  Sender: FDA-Public Use
  Company Number: None

PATIENT
  Age: 70 Year
  Sex: Female
  Weight: 53.0709 kg

DRUGS (1)
  1. DOXEPIN  50 MG [Suspect]

REACTIONS (2)
  - MEDICATION ERROR [None]
  - OVERDOSE [None]
